FAERS Safety Report 9903524 (Version 2)
Quarter: 2014Q1

REPORT INFORMATION
  Report Type: Spontaneous
  Country: US (occurrence: US)
  Receive Date: 20140217
  Receipt Date: 20140217
  Transmission Date: 20141002
  Serious: No
  Sender: FDA-Public Use
  Company Number: US-GILEAD-2012-0052417

PATIENT
  Age: 64 Year
  Sex: Female

DRUGS (4)
  1. LETAIRIS [Suspect]
     Indication: PULMONARY HYPERTENSION
     Dosage: 10 MG, UNK
     Route: 048
     Dates: end: 20120228
  2. LETAIRIS [Suspect]
     Dosage: 5 MG, UNK
     Route: 048
     Dates: start: 20110803
  3. LETAIRIS [Suspect]
     Dosage: 5 MG, UNK
     Route: 048
     Dates: start: 20120229
  4. REMODULIN [Concomitant]

REACTIONS (5)
  - Somnolence [Recovered/Resolved]
  - Increased appetite [Recovered/Resolved]
  - Vision blurred [Recovered/Resolved]
  - Hearing impaired [Recovered/Resolved]
  - Dyspnoea [Recovered/Resolved]
